FAERS Safety Report 19622327 (Version 1)
Quarter: 2021Q3

REPORT INFORMATION
  Report Type: Spontaneous
  Country: GB (occurrence: GB)
  Receive Date: 20210728
  Receipt Date: 20210728
  Transmission Date: 20211014
  Serious: Yes (Other)
  Sender: FDA-Public Use
  Company Number: GB-ALS-000337

PATIENT
  Age: 58 Year
  Sex: Female

DRUGS (1)
  1. METFORMIN [Suspect]
     Active Substance: METFORMIN HYDROCHLORIDE
     Indication: TYPE 2 DIABETES MELLITUS
     Route: 065

REACTIONS (6)
  - Renal replacement therapy [Unknown]
  - Cardiac arrest [Unknown]
  - Supportive care [Unknown]
  - Cardiovascular disorder [Unknown]
  - Lactic acidosis [Recovering/Resolving]
  - Acute kidney injury [Unknown]
